FAERS Safety Report 6730418-3 (Version None)
Quarter: 2010Q2

REPORT INFORMATION
  Report Type: 
  Country: None (occurrence: None)
  Receive Date: 20100518
  Receipt Date: 20100512
  Transmission Date: 20101027
  Serious: Yes (Other)
  Sender: FDA-Public Use
  Company Number: B0546670A

PATIENT
  Sex: Female
  Weight: 65 kg

DRUGS (5)
  1. LAPATINIB [Suspect]
     Indication: BREAST CANCER
     Dosage: 1000MG PER DAY
     Route: 048
     Dates: start: 20081028
  2. TRASTUZUMAB [Suspect]
     Indication: BREAST CANCER
     Route: 042
     Dates: start: 20081028
  3. ASPIRIN [Concomitant]
     Dosage: 100MG TWICE PER DAY
     Route: 048
     Dates: start: 20030101
  4. PANTOPRAZOL [Concomitant]
     Indication: PROPHYLAXIS
     Dosage: 40MG TWICE PER DAY
     Route: 048
     Dates: start: 20080601
  5. LORAZEPAM [Concomitant]
     Indication: INSOMNIA
     Dosage: 50MG TWICE PER DAY
     Route: 048
     Dates: start: 20080831

REACTIONS (1)
  - DIARRHOEA [None]
